FAERS Safety Report 15858704 (Version 15)
Quarter: 2022Q3

REPORT INFORMATION
  Report Type: Spontaneous
  Country: CA (occurrence: CA)
  Receive Date: 20190123
  Receipt Date: 20220921
  Transmission Date: 20221027
  Serious: Yes (Hospitalization, Other)
  Sender: FDA-Public Use
  Company Number: CA-PFIZER INC-2016087083

PATIENT
  Age: 42 Year
  Sex: Female

DRUGS (74)
  1. ENBREL [Suspect]
     Active Substance: ETANERCEPT
     Indication: Rheumatoid arthritis
     Dosage: 50 MILLIGRAM, QWK
     Route: 058
     Dates: start: 2009
  2. ENBREL [Suspect]
     Active Substance: ETANERCEPT
     Dosage: UNK
     Route: 058
  3. ENBREL [Suspect]
     Active Substance: ETANERCEPT
     Dosage: 40 MILLIGRAM, QWK
  4. TOFACITINIB CITRATE [Suspect]
     Active Substance: TOFACITINIB CITRATE
     Indication: Rheumatoid arthritis
     Dosage: 5 MILLIGRAM, BID
     Route: 065
     Dates: start: 201512
  5. TOFACITINIB CITRATE [Suspect]
     Active Substance: TOFACITINIB CITRATE
     Dosage: 5 MILLIGRAM, BID
     Route: 058
  6. TOFACITINIB CITRATE [Suspect]
     Active Substance: TOFACITINIB CITRATE
     Dosage: 10 MILLIGRAM, BID
     Route: 065
  7. TOFACITINIB CITRATE [Suspect]
     Active Substance: TOFACITINIB CITRATE
     Dosage: 5 MILLIGRAM, 2 TIMES/WK
     Route: 065
  8. TOFACITINIB CITRATE [Suspect]
     Active Substance: TOFACITINIB CITRATE
     Dosage: 5 MILLIGRAM, EVERY 12 HOURS
     Route: 058
  9. TOFACITINIB CITRATE [Suspect]
     Active Substance: TOFACITINIB CITRATE
     Dosage: 5 MILLIGRAM, EVERY 12 HOURS
     Route: 065
  10. TOFACITINIB CITRATE [Suspect]
     Active Substance: TOFACITINIB CITRATE
     Dosage: 10 MILLIGRAM, BID
     Route: 058
  11. TOFACITINIB CITRATE [Suspect]
     Active Substance: TOFACITINIB CITRATE
     Dosage: 5 MILLIGRAM, BID
     Route: 058
  12. TOFACITINIB CITRATE [Suspect]
     Active Substance: TOFACITINIB CITRATE
     Dosage: 5 MILLIGRAM, QWK
     Route: 048
  13. TOFACITINIB CITRATE [Suspect]
     Active Substance: TOFACITINIB CITRATE
     Dosage: 5 MILLIGRAM
     Route: 048
  14. METHOTREXATE SODIUM [Suspect]
     Active Substance: METHOTREXATE SODIUM
     Indication: Rheumatoid arthritis
     Dosage: HIGH DOSE, UNK
     Route: 058
  15. METHOTREXATE SODIUM [Suspect]
     Active Substance: METHOTREXATE SODIUM
     Dosage: UNK
     Route: 058
  16. METHOTREXATE SODIUM [Suspect]
     Active Substance: METHOTREXATE SODIUM
     Indication: Rheumatoid arthritis
     Dosage: 15 MILLIGRAM, QWK
     Route: 048
  17. METHOTREXATE SODIUM [Suspect]
     Active Substance: METHOTREXATE SODIUM
     Dosage: 15 MILLIGRAM, QWK
     Route: 048
  18. SULFASALAZINE [Suspect]
     Active Substance: SULFASALAZINE
     Indication: Rheumatoid arthritis
     Dosage: UNK
     Route: 048
  19. SULFASALAZINE [Suspect]
     Active Substance: SULFASALAZINE
     Dosage: UNK
     Route: 065
     Dates: end: 201512
  20. PHENYLEPHRINE HCL [Suspect]
     Active Substance: PHENYLEPHRINE HYDROCHLORIDE
     Dosage: UNK
     Route: 065
  21. RITUXIMAB [Suspect]
     Active Substance: RITUXIMAB
     Dosage: UNK
     Route: 065
  22. HYDROXYCHLOROQUINE [Suspect]
     Active Substance: HYDROXYCHLOROQUINE
     Dosage: UNK
     Route: 065
  23. GOLD [Suspect]
     Active Substance: GOLD
     Dosage: UNK
     Route: 065
  24. HUMAN RHO(D) IMMUNE GLOBULIN [Suspect]
     Active Substance: HUMAN RHO(D) IMMUNE GLOBULIN
     Dosage: UNK
     Route: 065
  25. ACTEMRA [Suspect]
     Active Substance: TOCILIZUMAB
     Indication: Rheumatoid arthritis
     Dosage: 8.0 MILLIGRAM, QMO
     Route: 042
     Dates: end: 201512
  26. ACTEMRA [Suspect]
     Active Substance: TOCILIZUMAB
     Dosage: 8.0 MG/KG, QMO
     Route: 042
  27. ACTEMRA [Suspect]
     Active Substance: TOCILIZUMAB
     Dosage: UNK
     Route: 065
  28. ACTEMRA [Suspect]
     Active Substance: TOCILIZUMAB
     Dosage: 567 MILLIGRAM, Q4WK
     Route: 065
  29. ACTEMRA [Suspect]
     Active Substance: TOCILIZUMAB
     Dosage: UNK
     Route: 042
  30. HUMIRA [Suspect]
     Active Substance: ADALIMUMAB
     Indication: Rheumatoid arthritis
     Dosage: 40 MILLIGRAM, Q2WK
     Route: 058
     Dates: start: 200903
  31. HUMIRA [Suspect]
     Active Substance: ADALIMUMAB
     Dosage: 40 MILLIGRAM
     Route: 058
     Dates: end: 201204
  32. HUMIRA [Suspect]
     Active Substance: ADALIMUMAB
     Dosage: UNK
     Route: 058
  33. HUMIRA [Suspect]
     Active Substance: ADALIMUMAB
     Dosage: 40 MILLIGRAM, 2 TIMES/WK
     Route: 058
     Dates: end: 201204
  34. HUMIRA [Suspect]
     Active Substance: ADALIMUMAB
     Dosage: 40 MG
     Route: 058
  35. HUMIRA [Suspect]
     Active Substance: ADALIMUMAB
     Dosage: 40 MG, 2X/WEEK
     Route: 058
  36. HYDROXYCHLOROQUINE SULFATE [Suspect]
     Active Substance: HYDROXYCHLOROQUINE SULFATE
     Dosage: UNK
     Route: 065
  37. HYDROXYCHLOROQUINE SULFATE [Suspect]
     Active Substance: HYDROXYCHLOROQUINE SULFATE
     Dosage: 200 MILLIGRAM, BID
     Route: 065
  38. BENZALKONIUM CHLORIDE [Suspect]
     Active Substance: BENZALKONIUM CHLORIDE
     Dosage: UNK
     Route: 065
  39. BORIC ACID [Suspect]
     Active Substance: BORIC ACID
     Dosage: UNK
     Route: 065
  40. EDETATE DISODIUM [Suspect]
     Active Substance: EDETATE DISODIUM
     Dosage: UNK
     Route: 065
  41. SODIUM BORATE [Suspect]
     Active Substance: SODIUM BORATE
     Dosage: UNK, POWDER
     Route: 065
  42. BENZALKONIUM CHLORIDE\DIPHENHYDRAMINE HYDROCHLORIDE\PHENYLEPHRINE HYDR [Suspect]
     Active Substance: BENZALKONIUM CHLORIDE\DIPHENHYDRAMINE HYDROCHLORIDE\PHENYLEPHRINE HYDROCHLORIDE
     Dosage: UNK
     Route: 065
  43. ARAVA [Suspect]
     Active Substance: LEFLUNOMIDE
     Dosage: 20 MILLIGRAM
     Route: 065
  44. CIMZIA [Suspect]
     Active Substance: CERTOLIZUMAB PEGOL
     Dosage: UNK
     Route: 065
  45. CIMZIA [Suspect]
     Active Substance: CERTOLIZUMAB PEGOL
     Dosage: UNK
     Route: 058
  46. ORENCIA [Suspect]
     Active Substance: ABATACEPT
     Dosage: UNK
     Route: 042
  47. ORENCIA [Suspect]
     Active Substance: ABATACEPT
     Dosage: UNK
     Route: 065
  48. PLAQUENIL [Suspect]
     Active Substance: HYDROXYCHLOROQUINE SULFATE
     Indication: Rheumatoid arthritis
     Dosage: 200 MILLIGRAM, BID
     Route: 065
  49. RITUXAN [Suspect]
     Active Substance: RITUXIMAB
     Dosage: UNK
     Route: 065
  50. SIMPONI [Suspect]
     Active Substance: GOLIMUMAB
     Dosage: UNK
     Route: 065
  51. SIMPONI [Suspect]
     Active Substance: GOLIMUMAB
     Dosage: UNK
     Route: 058
  52. DIPHENHYDRAMINE HYDROCHLORIDE [Suspect]
     Active Substance: DIPHENHYDRAMINE HYDROCHLORIDE
     Dosage: UNK
     Route: 065
  53. HYDROXYCHLOROQUINE SULFATE [Suspect]
     Active Substance: HYDROXYCHLOROQUINE SULFATE
     Dosage: UNK
     Route: 065
  54. BENZALKONIUM CHLORIDE\DIPHENHYDRAMINE HYDROCHLORIDE\PHENYLEPHRINE HYDR [Suspect]
     Active Substance: BENZALKONIUM CHLORIDE\DIPHENHYDRAMINE HYDROCHLORIDE\PHENYLEPHRINE HYDROCHLORIDE
     Dosage: UNK
     Route: 065
  55. TOCILIZUMAB [Suspect]
     Active Substance: TOCILIZUMAB
     Indication: Rheumatoid arthritis
     Dosage: 8 MILLIGRAM, KG, QMO, 5 YEARS
     Route: 042
     Dates: start: 201205, end: 201512
  56. TOCILIZUMAB [Suspect]
     Active Substance: TOCILIZUMAB
     Dosage: UNK
     Route: 042
     Dates: end: 201512
  57. BENZALKONIUM [Suspect]
     Active Substance: BENZALKONIUM
     Dosage: UNK
     Route: 005
  58. BENZALKONIUM [Suspect]
     Active Substance: BENZALKONIUM
     Dosage: UNK
     Route: 065
  59. HUMAN IMMUNOGLOBULIN G [Suspect]
     Active Substance: HUMAN IMMUNOGLOBULIN G
     Dosage: UNK
     Route: 065
  60. CELEBREX [Concomitant]
     Active Substance: CELECOXIB
     Dosage: UNK
     Route: 065
  61. CELEBREX [Concomitant]
     Active Substance: CELECOXIB
     Dosage: 400 MILLIGRAM
     Route: 048
  62. CELEBREX [Concomitant]
     Active Substance: CELECOXIB
     Dosage: UNK
     Route: 048
  63. IBUPROFEN [Concomitant]
     Active Substance: IBUPROFEN
     Dosage: 400 MILLIGRAMDAILY, IF NEEDED
     Route: 048
  64. IBUPROFEN [Concomitant]
     Active Substance: IBUPROFEN
     Dosage: UNK
     Route: 065
  65. IBUPROFEN AND PSEUDOEPHEDRINE HYDROCHLORIDE [Concomitant]
     Active Substance: IBUPROFEN\PSEUDOEPHEDRINE HYDROCHLORIDE
     Dosage: UNK
  66. LIPITOR [Concomitant]
     Active Substance: ATORVASTATIN CALCIUM
     Indication: Rheumatoid arthritis
     Dosage: 10 MILLIGRAM, QD
     Route: 048
  67. LIPITOR [Concomitant]
     Active Substance: ATORVASTATIN CALCIUM
     Dosage: UNK
     Route: 065
  68. LIPITOR [Concomitant]
     Active Substance: ATORVASTATIN CALCIUM
     Dosage: 10 MILLIGRAM
     Route: 048
  69. LIPITOR [Concomitant]
     Active Substance: ATORVASTATIN CALCIUM
     Dosage: 10 MILLIGRAM, QWK
     Route: 048
  70. LIPITOR [Concomitant]
     Active Substance: ATORVASTATIN CALCIUM
     Dosage: 100 MILLIGRAM
     Route: 048
  71. PREDNISONE [Concomitant]
     Active Substance: PREDNISONE
     Indication: Rheumatoid arthritis
     Dosage: UNK
     Route: 065
  72. PREDNISONE [Concomitant]
     Active Substance: PREDNISONE
     Dosage: 15 MILLIGRAM, QWK
     Route: 048
  73. XELJANZ [Concomitant]
     Active Substance: TOFACITINIB CITRATE
     Indication: Rheumatoid arthritis
     Dosage: 5 MILLIGRAM, BID
     Route: 048
     Dates: start: 20160105
  74. XELJANZ [Concomitant]
     Active Substance: TOFACITINIB CITRATE
     Dosage: UNK
     Route: 065

REACTIONS (27)
  - Arthralgia [Unknown]
  - C-reactive protein abnormal [Not Recovered/Not Resolved]
  - Condition aggravated [Unknown]
  - Joint injury [Unknown]
  - Joint stiffness [Unknown]
  - Joint swelling [Not Recovered/Not Resolved]
  - Musculoskeletal pain [Unknown]
  - Musculoskeletal stiffness [Unknown]
  - Pain in extremity [Unknown]
  - Therapy non-responder [Unknown]
  - Neoplasm malignant [Unknown]
  - Pulmonary toxicity [Unknown]
  - Hepatotoxicity [Unknown]
  - Gastrointestinal toxicity [Unknown]
  - Infection [Unknown]
  - Arthropathy [Not Recovered/Not Resolved]
  - Treatment failure [Unknown]
  - Drug ineffective [Unknown]
  - Contraindicated product administered [Not Recovered/Not Resolved]
  - Drug hypersensitivity [Not Recovered/Not Resolved]
  - Drug intolerance [Not Recovered/Not Resolved]
  - Therapeutic product effect incomplete [Not Recovered/Not Resolved]
  - Inflammation [Not Recovered/Not Resolved]
  - Therapeutic product effect decreased [Not Recovered/Not Resolved]
  - Peripheral swelling [Not Recovered/Not Resolved]
  - Off label use [Unknown]
  - Off label use [Unknown]
